FAERS Safety Report 23900573 (Version 1)
Quarter: 2024Q2

REPORT INFORMATION
  Report Type: Spontaneous
  Country: US (occurrence: None)
  Receive Date: 20240526
  Receipt Date: 20240526
  Transmission Date: 20240715
  Serious: No
  Sender: FDA-Public Use
  Company Number: US-ROCHE-3448766

PATIENT
  Sex: Female

DRUGS (1)
  1. OCREVUS [Suspect]
     Active Substance: OCRELIZUMAB
     Indication: Product used for unknown indication
     Dosage: LAST DOSE WAS ON 10/OCT/2023.
     Route: 042
     Dates: start: 20230927

REACTIONS (2)
  - Nausea [Unknown]
  - Pain in extremity [Recovered/Resolved]
